FAERS Safety Report 11854876 (Version 1)
Quarter: 2015Q4

REPORT INFORMATION
  Report Type: Spontaneous
  Country: FR (occurrence: FR)
  Receive Date: 20151221
  Receipt Date: 20151221
  Transmission Date: 20160305
  Serious: Yes (Hospitalization)
  Sender: FDA-Public Use
  Company Number: FR-ROCHE-1679438

PATIENT
  Age: 69 Year
  Sex: Female

DRUGS (10)
  1. CELLCEPT [Suspect]
     Active Substance: MYCOPHENOLATE MOFETIL\MYCOPHENOLATE MOFETIL HYDROCHLORIDE
     Route: 048
  2. SODIUM CARBONATE [Concomitant]
     Active Substance: SODIUM CARBONATE
  3. ISOPHANE INSULIN [Concomitant]
     Active Substance: INSULIN NOS
  4. CELLCEPT [Suspect]
     Active Substance: MYCOPHENOLATE MOFETIL\MYCOPHENOLATE MOFETIL HYDROCHLORIDE
     Indication: PROPHYLAXIS AGAINST TRANSPLANT REJECTION
     Route: 048
     Dates: end: 20151103
  5. EUPANTOL [Concomitant]
     Active Substance: PANTOPRAZOLE SODIUM
  6. GAVISCON (ALGINIC ACID) [Concomitant]
  7. OLMESARTAN [Concomitant]
     Active Substance: OLMESARTAN
  8. ADVAGRAF [Concomitant]
     Active Substance: TACROLIMUS
  9. TELMISARTAN. [Concomitant]
     Active Substance: TELMISARTAN
  10. MICARDIS [Concomitant]
     Active Substance: TELMISARTAN
     Route: 048
     Dates: end: 20150521

REACTIONS (4)
  - Weight decreased [Recovering/Resolving]
  - Diarrhoea [Recovering/Resolving]
  - Chronic kidney disease [Recovering/Resolving]
  - Malabsorption [Recovering/Resolving]

NARRATIVE: CASE EVENT DATE: 201409
